FAERS Safety Report 10723007 (Version 1)
Quarter: 2015Q1

REPORT INFORMATION
  Report Type: Report from Study
  Country: US (occurrence: US)
  Receive Date: 20150120
  Receipt Date: 20150120
  Transmission Date: 20150721
  Serious: Yes (Hospitalization, Other)
  Sender: FDA-Public Use
  Company Number: US-ROCHE-1522892

PATIENT
  Age: 56 Year
  Sex: Male
  Weight: 74.57 kg

DRUGS (5)
  1. SYNTHROID [Concomitant]
     Active Substance: LEVOTHYROXINE SODIUM
     Dosage: DOSE: 125 MCG
     Route: 065
  2. CISPLATIN. [Suspect]
     Active Substance: CISPLATIN
     Indication: HEAD AND NECK CANCER METASTATIC
     Dosage: MOST RECENT DOSE OF CISPLATIN PRIOR TO SERIOUS ADVERSE EVENT WAS ADMINISTRED ON 01/AUG/2014, CYCLE:
     Route: 042
     Dates: start: 20140712
  3. CIPROFLOXACIN. [Concomitant]
     Active Substance: CIPROFLOXACIN
     Route: 048
  4. DOCETAXEL. [Suspect]
     Active Substance: DOCETAXEL
     Indication: HEAD AND NECK CANCER METASTATIC
     Dosage: MOST RECENT DOSE OF DOCETAXEL PRIOR TO SERIOUS ADVERSE EVENT WAS ADMINISTRED ON 01/AUG/2014, CYCLE:
     Route: 042
     Dates: start: 20140712
  5. BEVACIZUMAB [Suspect]
     Active Substance: BEVACIZUMAB
     Indication: HEAD AND NECK CANCER METASTATIC
     Dosage: MOST RECENT DOSE OF BEVACIZUMAB PRIOR TO SERIOUS ADVERSE EVENT WAS ADMINISTRED ON 01/AUG/2014, CYCLE
     Route: 042
     Dates: start: 20140712

REACTIONS (3)
  - Pyrexia [Recovered/Resolved]
  - Hyponatraemia [Recovering/Resolving]
  - Atrial fibrillation [Recovered/Resolved]

NARRATIVE: CASE EVENT DATE: 20140811
